FAERS Safety Report 18504836 (Version 1)
Quarter: 2020Q4

REPORT INFORMATION
  Report Type: Spontaneous
  Country: FR (occurrence: FR)
  Receive Date: 20201115
  Receipt Date: 20201115
  Transmission Date: 20210114
  Serious: Yes (Other)
  Sender: FDA-Public Use
  Company Number: NVSC2020FR299139

PATIENT
  Age: 29 Year
  Sex: Male
  Weight: 75 kg

DRUGS (6)
  1. DOLIPRANE [Concomitant]
     Active Substance: ACETAMINOPHEN
     Indication: PRODUCT USED FOR UNKNOWN INDICATION
     Dosage: UNK
     Route: 065
  2. STELARA [Suspect]
     Active Substance: USTEKINUMAB
     Indication: PUSTULAR PSORIASIS
     Dosage: 1 DF
     Route: 058
     Dates: start: 20170712
  3. NEORAL [Suspect]
     Active Substance: CYCLOSPORINE
     Indication: PUSTULAR PSORIASIS
     Dosage: 200 MG, QD
     Route: 048
  4. SORIATANE [Suspect]
     Active Substance: ACITRETIN
     Indication: PUSTULAR PSORIASIS
     Dosage: 25 MG, QD (DE 2001A2004 :POSO INCONNUE, DE 2014 AU 06/06/2017 : 25MG 1J/2, PUIS DEPUIS 25MG/J )
     Route: 048
     Dates: start: 2001
  5. AERIUS [Concomitant]
     Indication: PRODUCT USED FOR UNKNOWN INDICATION
     Dosage: UNK
     Route: 065
  6. TRAMADOL. [Concomitant]
     Active Substance: TRAMADOL
     Indication: PRODUCT USED FOR UNKNOWN INDICATION
     Dosage: UNK
     Route: 065

REACTIONS (4)
  - Rheumatoid factor positive [Not Recovered/Not Resolved]
  - Antiphospholipid antibodies positive [Not Recovered/Not Resolved]
  - Peripheral artery thrombosis [Not Recovered/Not Resolved]
  - Anti-cyclic citrullinated peptide antibody positive [Not Recovered/Not Resolved]

NARRATIVE: CASE EVENT DATE: 20201006
